FAERS Safety Report 4862754-X (Version None)
Quarter: 2005Q4

REPORT INFORMATION
  Report Type: 
  Country: None (occurrence: None)
  Receive Date: 20051221
  Receipt Date: 20051209
  Transmission Date: 20060501
  Serious: Yes (Other)
  Sender: FDA-Public Use
  Company Number: CA-BRISTOL-MYERS SQUIBB COMPANY-13218359

PATIENT
  Age: 88 Year
  Sex: Female

DRUGS (7)
  1. TEQUIN [Suspect]
     Route: 048
  2. AMLODIPINE [Concomitant]
  3. ASACOL [Concomitant]
  4. DIGOXIN [Concomitant]
     Route: 051
  5. ENALAPRIL [Concomitant]
  6. FUROSEMIDE [Concomitant]
  7. POTASSIUM [Concomitant]

REACTIONS (13)
  - ALANINE AMINOTRANSFERASE INCREASED [None]
  - ASPARTATE AMINOTRANSFERASE INCREASED [None]
  - BLOOD CREATININE [None]
  - BLOOD LACTATE DEHYDROGENASE INCREASED [None]
  - BLOOD UREA INCREASED [None]
  - DEPRESSED LEVEL OF CONSCIOUSNESS [None]
  - DIABETIC COMA [None]
  - DYSPNOEA [None]
  - HYPERGLYCAEMIA [None]
  - HYPERKALAEMIA [None]
  - HYPERNATRAEMIA [None]
  - LEUKOCYTOSIS [None]
  - NEUTROPHILIA [None]
